FAERS Safety Report 18626150 (Version 2)
Quarter: 2021Q1

REPORT INFORMATION
  Report Type: Spontaneous
  Country: JP (occurrence: JP)
  Receive Date: 20201216
  Receipt Date: 20210105
  Transmission Date: 20210419
  Serious: Yes (Death, Other)
  Sender: FDA-Public Use
  Company Number: JP-SAKK-2020SA358357AA

PATIENT

DRUGS (3)
  1. FLUOROURACIL. [Suspect]
     Active Substance: FLUOROURACIL
     Indication: OESOPHAGEAL CARCINOMA
     Route: 065
  2. CISPLATIN. [Suspect]
     Active Substance: CISPLATIN
     Indication: OESOPHAGEAL CARCINOMA
     Route: 065
  3. DOCETAXEL. [Suspect]
     Active Substance: DOCETAXEL
     Indication: OESOPHAGEAL CARCINOMA
     Route: 041

REACTIONS (9)
  - Blast cell count increased [Fatal]
  - Dyspnoea exertional [Fatal]
  - Acute myeloid leukaemia [Fatal]
  - Malaise [Fatal]
  - Anaemia [Fatal]
  - Megakaryocytes abnormal [Fatal]
  - Myelodysplastic syndrome [Fatal]
  - Platelet count decreased [Fatal]
  - Erythroblast morphology abnormal [Fatal]
